FAERS Safety Report 9144138 (Version 7)
Quarter: 2014Q3

REPORT INFORMATION
  Report Type: Report from Study
  Country: BR (occurrence: BR)
  Receive Date: 20130306
  Receipt Date: 20140715
  Transmission Date: 20150326
  Serious: Yes (Hospitalization, Disabling, Other)
  Sender: FDA-Public Use
  Company Number: BR-ROCHE-1083016

PATIENT
  Age: 47 Year
  Sex: Female
  Weight: 72 kg

DRUGS (20)
  1. MABTHERA [Suspect]
     Active Substance: RITUXIMAB
     Route: 042
     Dates: start: 201101
  2. METFORMIN [Concomitant]
     Active Substance: METFORMIN HYDROCHLORIDE
     Indication: DIABETES MELLITUS
     Route: 065
  3. CYCLOBENZAPRINE [Concomitant]
     Active Substance: CYCLOBENZAPRINE
     Route: 065
  4. QUETIAPINE FUMARATE. [Concomitant]
     Active Substance: QUETIAPINE FUMARATE
     Route: 065
  5. INDAPEN [Concomitant]
     Active Substance: INDAPAMIDE
     Route: 065
  6. FLUOXETINE [Concomitant]
     Active Substance: FLUOXETINE\FLUOXETINE HYDROCHLORIDE
     Route: 065
  7. MABTHERA [Suspect]
     Active Substance: RITUXIMAB
     Route: 042
     Dates: start: 201107
  8. ATENOLOL. [Concomitant]
     Active Substance: ATENOLOL
     Indication: HYPERTENSION
     Route: 065
  9. MELOXICAM. [Concomitant]
     Active Substance: MELOXICAM
     Indication: FIBROMYALGIA
  10. MABTHERA [Suspect]
     Active Substance: RITUXIMAB
     Indication: SYSTEMIC LUPUS ERYTHEMATOSUS
     Route: 042
     Dates: start: 201008
  11. RIVOTRIL [Concomitant]
     Active Substance: CLONAZEPAM
     Route: 065
  12. BROMOPRIDE [Concomitant]
     Active Substance: BROMOPRIDE
     Dosage: 40 DROPS DAILY
     Route: 065
  13. ALLEGRA [Concomitant]
     Active Substance: FEXOFENADINE HYDROCHLORIDE
     Indication: PREMEDICATION
  14. PREDSIM [Concomitant]
     Active Substance: PREDNISOLONE
     Route: 065
  15. DIAZEPAM. [Concomitant]
     Active Substance: DIAZEPAM
     Route: 065
  16. DEPAKENE [Concomitant]
     Active Substance: VALPROIC ACID
     Route: 065
  17. PREDNISONE. [Concomitant]
     Active Substance: PREDNISONE
     Route: 065
  18. OMEPRAZOL [Concomitant]
     Active Substance: OMEPRAZOLE
     Route: 065
  19. SIMVASTATIN. [Concomitant]
     Active Substance: SIMVASTATIN
     Route: 065
  20. CORTISONE [Concomitant]
     Active Substance: CORTISONE\HYDROCORTISONE
     Indication: PREMEDICATION

REACTIONS (15)
  - Muscular weakness [Recovering/Resolving]
  - Pain in extremity [Recovering/Resolving]
  - Renal cyst [Not Recovered/Not Resolved]
  - Nephrocalcinosis [Not Recovered/Not Resolved]
  - Leiomyoma [Not Recovered/Not Resolved]
  - Haematuria [Recovering/Resolving]
  - Headache [Not Recovered/Not Resolved]
  - Nephrolithiasis [Unknown]
  - Choking sensation [Recovered/Resolved]
  - Furuncle [Not Recovered/Not Resolved]
  - Formication [Not Recovered/Not Resolved]
  - Formication [Unknown]
  - Hepatic function abnormal [Not Recovered/Not Resolved]
  - Hepatic neoplasm [Unknown]
  - Formication [Recovered/Resolved]

NARRATIVE: CASE EVENT DATE: 20120602
